FAERS Safety Report 15507860 (Version 1)
Quarter: 2018Q4

REPORT INFORMATION
  Report Type: Spontaneous
  Country: US (occurrence: US)
  Receive Date: 20181016
  Receipt Date: 20181016
  Transmission Date: 20190205
  Serious: No
  Sender: FDA-Public Use
  Company Number: US-SA-2018SA285107

PATIENT
  Sex: Female

DRUGS (1)
  1. CORTIZONE 10 INTENSIVE HEALING FEMININE ITCH RELIEF [Suspect]
     Active Substance: HYDROCORTISONE

REACTIONS (1)
  - Application site coldness [Unknown]
